FAERS Safety Report 18244931 (Version 1)
Quarter: 2020Q3

REPORT INFORMATION
  Report Type: Report from Study
  Country: None (occurrence: US)
  Receive Date: 20200909
  Receipt Date: 20200909
  Transmission Date: 20201103
  Serious: Yes (Hospitalization)
  Sender: FDA-Public Use
  Company Number: US-ABBVIE-20K-163-3554773-00

PATIENT
  Age: 50 Year
  Sex: Female

DRUGS (2)
  1. HUMIRA [Suspect]
     Active Substance: ADALIMUMAB
     Indication: CROHN^S DISEASE
     Dosage: DAY 1
     Route: 058
     Dates: start: 20200831, end: 20200831
  2. HUMIRA [Suspect]
     Active Substance: ADALIMUMAB
     Indication: CROHN^S DISEASE
     Route: 058
     Dates: start: 201808, end: 2019

REACTIONS (13)
  - Flatulence [Unknown]
  - Insomnia [Recovering/Resolving]
  - Liposuction [Unknown]
  - Compartment syndrome [Unknown]
  - Depression [Recovering/Resolving]
  - Alopecia [Unknown]
  - Diarrhoea [Recovering/Resolving]
  - Tooth loss [Unknown]
  - Abdominal hernia [Unknown]
  - Abdominal pain [Recovering/Resolving]
  - Anxiety [Unknown]
  - Post procedural infection [Recovered/Resolved]
  - Injury [Unknown]

NARRATIVE: CASE EVENT DATE: 20190825
